FAERS Safety Report 6048640-0 (Version None)
Quarter: 2009Q1

REPORT INFORMATION
  Report Type: 
  Country: None (occurrence: None)
  Receive Date: 20090123
  Receipt Date: 20090115
  Transmission Date: 20090719
  Serious: No
  Sender: FDA-Public Use
  Company Number: US-ELI_LILLY_AND_COMPANY-US200901002748

PATIENT
  Sex: Male

DRUGS (2)
  1. CIALIS [Suspect]
     Dosage: 20 MG, UNKNOWN
     Route: 065
     Dates: start: 20050101, end: 20050101
  2. CIALIS [Suspect]
     Dosage: 20 MG, UNKNOWN
     Route: 065
     Dates: start: 20090101

REACTIONS (4)
  - BACK PAIN [None]
  - HEADACHE [None]
  - NERVOUSNESS [None]
  - VISUAL IMPAIRMENT [None]
